FAERS Safety Report 6672369-9 (Version None)
Quarter: 2010Q2

REPORT INFORMATION
  Report Type: 
  Country: None (occurrence: None)
  Receive Date: 20100408
  Receipt Date: 20100328
  Transmission Date: 20101027
  Serious: Yes (Other)
  Sender: FDA-Public Use
  Company Number: FR-JNJFOC-20100308854

PATIENT
  Sex: Male

DRUGS (3)
  1. REMICADE [Suspect]
     Indication: PSORIASIS
     Route: 042
  2. REMICADE [Suspect]
     Indication: ENTEROCOLITIS HAEMORRHAGIC
     Route: 042
  3. REMICADE [Suspect]
     Indication: RHEUMATOID ARTHRITIS
     Route: 042

REACTIONS (3)
  - ERYTHEMA [None]
  - FATIGUE [None]
  - MALAISE [None]
